FAERS Safety Report 4279289-8 (Version None)
Quarter: 2004Q1

REPORT INFORMATION
  Report Type: 
  Country: None (occurrence: None)
  Receive Date: 20040122
  Receipt Date: 20040109
  Transmission Date: 20041129
  Serious: Yes (Hospitalization)
  Sender: FDA-Public Use
  Company Number: 2004001698

PATIENT
  Age: 16 Year
  Sex: Female

DRUGS (7)
  1. CETIRIZINE HCL [Suspect]
     Indication: RHINITIS ALLERGIC
     Dosage: ORAL
     Route: 048
     Dates: start: 20030617
  2. TACROLIMUS (TACROLIMUS) [Suspect]
     Indication: IMMUNOSUPPRESSION
  3. BACTRIM [Concomitant]
  4. AMLODIPINE [Concomitant]
  5. BASILIXIMAB (BASILIXIMAB) [Concomitant]
  6. AZATHIOPRINE [Concomitant]
  7. PREDNISOLONE [Concomitant]

REACTIONS (4)
  - BLOOD CREATININE INCREASED [None]
  - DRUG LEVEL INCREASED [None]
  - HYPERTENSION [None]
  - NEPHROPATHY TOXIC [None]
